FAERS Safety Report 14891559 (Version 1)
Quarter: 2018Q2

REPORT INFORMATION
  Report Type: Spontaneous
  Country: US (occurrence: US)
  Receive Date: 20180514
  Receipt Date: 20180514
  Transmission Date: 20180711
  Serious: No
  Sender: FDA-Public Use
  Company Number: US-UNITED THERAPEUTICS-UNT-2017-017272

PATIENT
  Sex: Female
  Weight: 88.89 kg

DRUGS (4)
  1. ORENITRAM [Suspect]
     Active Substance: TREPROSTINIL
     Dosage: 3 MG, TID
     Route: 048
  2. ADCIRCA [Concomitant]
     Active Substance: TADALAFIL
     Indication: PRODUCT USED FOR UNKNOWN INDICATION
     Dosage: UNK
     Route: 065
  3. ORENITRAM [Suspect]
     Active Substance: TREPROSTINIL
     Dosage: 2 MG, TID
     Route: 048
  4. ORENITRAM [Suspect]
     Active Substance: TREPROSTINIL
     Indication: PULMONARY ARTERIAL HYPERTENSION
     Dosage: 4 MG, TID
     Route: 048
     Dates: start: 20171027

REACTIONS (13)
  - Headache [Not Recovered/Not Resolved]
  - Diarrhoea [Not Recovered/Not Resolved]
  - Myalgia [Not Recovered/Not Resolved]
  - Condition aggravated [Unknown]
  - Loss of personal independence in daily activities [Unknown]
  - Asthenia [Unknown]
  - Eye swelling [Unknown]
  - Pain in extremity [Recovering/Resolving]
  - Dyspnoea [Not Recovered/Not Resolved]
  - Nausea [Not Recovered/Not Resolved]
  - Abdominal pain upper [Unknown]
  - Oxygen saturation decreased [Unknown]
  - Gait disturbance [Unknown]

NARRATIVE: CASE EVENT DATE: 2017
